FAERS Safety Report 6389938-6 (Version None)
Quarter: 2009Q4

REPORT INFORMATION
  Report Type: 
  Country: None (occurrence: None)
  Receive Date: 20091006
  Receipt Date: 20090512
  Transmission Date: 20100525
  Serious: No
  Sender: FDA-Public Use
  Company Number: US-BRISTOL-MYERS SQUIBB COMPANY-14619589

PATIENT
  Age: 73 Year
  Sex: Female
  Weight: 68 kg

DRUGS (2)
  1. AVAPRO [Suspect]
     Indication: HYPERTENSION
  2. ALTACE [Concomitant]
     Dates: end: 20090101

REACTIONS (6)
  - CUTIS LAXA [None]
  - DIARRHOEA [None]
  - DRY MOUTH [None]
  - DRY SKIN [None]
  - DRY THROAT [None]
  - NASAL DRYNESS [None]
